FAERS Safety Report 4543616-4 (Version None)
Quarter: 2005Q1

REPORT INFORMATION
  Report Type: 
  Country: None (occurrence: None)
  Receive Date: 20050103
  Receipt Date: 20041220
  Transmission Date: 20050727
  Serious: Yes (Other)
  Sender: FDA-Public Use
  Company Number: 389381

PATIENT
  Age: 82 Year
  Sex: Male

DRUGS (1)
  1. KREDEX [Suspect]
     Indication: HYPERTENSION
     Route: 048
     Dates: start: 20020101, end: 20040101

REACTIONS (2)
  - BRADYCARDIA [None]
  - SICK SINUS SYNDROME [None]
